FAERS Safety Report 17386922 (Version 1)
Quarter: 2020Q1

REPORT INFORMATION
  Report Type: Other
  Country: SE (occurrence: SE)
  Receive Date: 20200206
  Receipt Date: 20200206
  Transmission Date: 20200409
  Serious: Yes (Hospitalization)
  Sender: FDA-Public Use
  Company Number: SE-VITRUVIAS THERAPEUTICS-2079925

PATIENT
  Age: 2 Month
  Sex: Male

DRUGS (2)
  1. PRILOCAINE HYDROCHLORIDE. [Suspect]
     Active Substance: PRILOCAINE HYDROCHLORIDE
     Route: 061
  2. LIDOCAINE. [Suspect]
     Active Substance: LIDOCAINE
     Route: 061

REACTIONS (1)
  - Methaemoglobinaemia [Recovered/Resolved]
